FAERS Safety Report 16139637 (Version 1)
Quarter: 2019Q2

REPORT INFORMATION
  Report Type: Spontaneous
  Country: US (occurrence: US)
  Receive Date: 20190329
  Receipt Date: 20190329
  Transmission Date: 20190711
  Serious: Yes (Disabling)
  Sender: FDA-Public Use
  Company Number: None

PATIENT
  Age: 60 Year
  Sex: Female
  Weight: 82.35 kg

DRUGS (8)
  1. CIPROFLOXACIN HCL  500 MG TA [Suspect]
     Active Substance: CIPROFLOXACIN HYDROCHLORIDE
     Indication: URINARY TRACT INFECTION
     Dosage: ?          QUANTITY:10 TABLET(S);?
     Route: 048
  2. ATORVASTATIN [Concomitant]
     Active Substance: ATORVASTATIN
  3. CALCIUM [Concomitant]
     Active Substance: CALCIUM
  4. VITAMIN B12 [Concomitant]
     Active Substance: CYANOCOBALAMIN
  5. LOSARTAN POTASSIUM. [Concomitant]
     Active Substance: LOSARTAN POTASSIUM
  6. UBIQUINOL [Concomitant]
     Active Substance: UBIQUINOL
  7. MAGNESIUM [Concomitant]
     Active Substance: MAGNESIUM
  8. VITAMIN C [Concomitant]
     Active Substance: ASCORBIC ACID

REACTIONS (20)
  - Chest pain [None]
  - Arthralgia [None]
  - Memory impairment [None]
  - Gait disturbance [None]
  - Palpitations [None]
  - Malaise [None]
  - Asthenia [None]
  - Anxiety [None]
  - Lip swelling [None]
  - Hyperhidrosis [None]
  - Tendon pain [None]
  - Pain in extremity [None]
  - Neuropathy peripheral [None]
  - Muscle spasms [None]
  - Erythema [None]
  - Joint noise [None]
  - Chills [None]
  - Myalgia [None]
  - Insomnia [None]
  - Fear [None]

NARRATIVE: CASE EVENT DATE: 20190328
